FAERS Safety Report 6749532-1 (Version None)
Quarter: 2010Q2

REPORT INFORMATION
  Report Type: 
  Country: None (occurrence: None)
  Receive Date: 20100601
  Receipt Date: 20100520
  Transmission Date: 20101027
  Serious: Yes (Hospitalization)
  Sender: FDA-Public Use
  Company Number: US-SANOFI-AVENTIS-2010SA029964

PATIENT
  Age: 83 Year
  Sex: Male

DRUGS (1)
  1. LOVENOX [Suspect]
     Indication: THROMBOSIS PROPHYLAXIS
     Route: 065
     Dates: start: 20100501

REACTIONS (6)
  - ABASIA [None]
  - CARDIO-RESPIRATORY ARREST [None]
  - FAECES DISCOLOURED [None]
  - HAEMORRHAGE [None]
  - NAUSEA [None]
  - PERITONEAL HAEMORRHAGE [None]
